FAERS Safety Report 8058375-0 (Version None)
Quarter: 2012Q1

REPORT INFORMATION
  Report Type: 
  Country: None (occurrence: None)
  Receive Date: 20120120
  Receipt Date: 20120109
  Transmission Date: 20120608
  Serious: Yes (Other)
  Sender: FDA-Public Use
  Company Number: US-RB-033137-12

PATIENT
  Age: 12 Year
  Sex: Male
  Weight: 99 kg

DRUGS (1)
  1. MUCINEX [Suspect]
     Indication: PRODUCT USED FOR UNKNOWN INDICATION
     Dosage: PATIENT TOOK 10 TABLETS AT ONCE, THEN TOOK ANOTHER 4 TABLETS LATER IN THE DAY.
     Route: 048
     Dates: start: 20120109

REACTIONS (4)
  - FEELING ABNORMAL [None]
  - SOMNOLENCE [None]
  - OVERDOSE [None]
  - DRUG ABUSE [None]
